FAERS Safety Report 15466256 (Version 1)
Quarter: 2018Q4

REPORT INFORMATION
  Report Type: Spontaneous
  Country: US (occurrence: US)
  Receive Date: 20181004
  Receipt Date: 20181004
  Transmission Date: 20190204
  Serious: Yes (Other)
  Sender: FDA-Public Use
  Company Number: US-LPDUSPRD-20181843

PATIENT
  Sex: Female

DRUGS (3)
  1. PACLITAXEL. [Suspect]
     Active Substance: PACLITAXEL
     Dosage: 175MG/M^2
     Route: 042
  2. CARBOPLATIN. [Suspect]
     Active Substance: CARBOPLATIN
     Dosage: AUC 5
     Route: 042
  3. SELENIUM INJECTION (6510-25) [Suspect]
     Active Substance: SELENIUM
     Dosage: 5000 MCG
     Route: 042

REACTIONS (2)
  - Product use in unapproved indication [Unknown]
  - Neuropathy peripheral [Unknown]
